FAERS Safety Report 12966293 (Version 3)
Quarter: 2016Q4

REPORT INFORMATION
  Report Type: Report from Study
  Country: IT (occurrence: IT)
  Receive Date: 20161122
  Receipt Date: 20161213
  Transmission Date: 20170207
  Serious: No
  Sender: FDA-Public Use
  Company Number: IT-GILEAD-2016-0244040

PATIENT
  Sex: Male

DRUGS (1)
  1. IDELALISIB [Suspect]
     Active Substance: IDELALISIB
     Indication: CHRONIC LYMPHOCYTIC LEUKAEMIA
     Dosage: 150 MG, BID
     Route: 065
     Dates: start: 20160301, end: 20160831

REACTIONS (2)
  - Transaminases increased [Unknown]
  - Colitis [Unknown]
